FAERS Safety Report 22302003 (Version 3)
Quarter: 2025Q4

REPORT INFORMATION
  Report Type: Spontaneous
  Country: US (occurrence: US)
  Receive Date: 20230510
  Receipt Date: 20251004
  Transmission Date: 20260118
  Serious: No
  Sender: SANOFI AVENTIS
  Company Number: US-SA-SAC20230508000396

PATIENT
  Sex: Female

DRUGS (2)
  1. DUPIXENT [Suspect]
     Active Substance: DUPILUMAB
     Indication: Dermatitis allergic
     Dosage: 300 MG, QOW
     Route: 058
  2. DUPIXENT [Suspect]
     Active Substance: DUPILUMAB
     Dosage: 300 MG, QOW
     Route: 058

REACTIONS (7)
  - Injection site discharge [Unknown]
  - Pain [Unknown]
  - Nasopharyngitis [Unknown]
  - Injection site pain [Unknown]
  - Eczema [Unknown]
  - Therapeutic response decreased [Unknown]
  - Intentional dose omission [Unknown]
